FAERS Safety Report 23578241 (Version 1)
Quarter: 2024Q1

REPORT INFORMATION
  Report Type: Spontaneous
  Country: US (occurrence: US)
  Receive Date: 20240229
  Receipt Date: 20240229
  Transmission Date: 20240410
  Serious: No
  Sender: FDA-Public Use
  Company Number: US-AUROBINDO-AUR-APL-2023-039134

PATIENT
  Age: 29 Year
  Sex: Female
  Weight: 64 kg

DRUGS (3)
  1. CEFDINIR [Suspect]
     Active Substance: CEFDINIR
     Indication: Sinusitis
     Dosage: 300 MILLIGRAM, TWO TIMES A DAY
     Route: 048
     Dates: start: 20230508, end: 20230514
  2. CEFDINIR [Suspect]
     Active Substance: CEFDINIR
     Indication: Nasal congestion
  3. DIFLUCAN [Concomitant]
     Active Substance: FLUCONAZOLE
     Indication: Fungal infection
     Dosage: UNK
     Route: 065

REACTIONS (2)
  - Candida infection [Recovered/Resolved]
  - Vaginal lesion [Not Recovered/Not Resolved]

NARRATIVE: CASE EVENT DATE: 20230514
